FAERS Safety Report 8016800-5 (Version None)
Quarter: 2012Q1

REPORT INFORMATION
  Report Type: 
  Country: None (occurrence: None)
  Receive Date: 20120102
  Receipt Date: 20111219
  Transmission Date: 20120608
  Serious: Yes (Other)
  Sender: FDA-Public Use
  Company Number: GB-RANBAXY-2011R1-51364

PATIENT
  Age: 49 Year
  Sex: Female
  Weight: 60 kg

DRUGS (5)
  1. CLARITHROMYCIN [Suspect]
     Indication: LOWER RESPIRATORY TRACT INFECTION
     Route: 065
  2. TOLTERODINE TARTRATE [Interacting]
     Indication: BLADDER IRRITATION
     Dosage: 4 MG, QD
     Route: 048
     Dates: start: 20111018, end: 20111019
  3. FLUOXETINE [Interacting]
     Indication: DEPRESSION
  4. FLUOXETINE [Interacting]
     Indication: ANXIETY
     Dosage: UNK
     Route: 065
     Dates: start: 20110901
  5. TOLTERODINE TARTRATE [Interacting]
     Indication: POLLAKIURIA

REACTIONS (2)
  - DRUG INTERACTION [None]
  - EPILEPSY [None]
